FAERS Safety Report 14154961 (Version 4)
Quarter: 2018Q2

REPORT INFORMATION
  Report Type: Spontaneous
  Country: JP (occurrence: JP)
  Receive Date: 20171102
  Receipt Date: 20180405
  Transmission Date: 20180711
  Serious: Yes (Life-Threatening, Other)
  Sender: FDA-Public Use
  Company Number: PHJP2017JP032112

PATIENT
  Age: 74 Year
  Sex: Male
  Weight: 47.7 kg

DRUGS (7)
  1. BACTRAMIN [Interacting]
     Active Substance: SULFAMETHOXAZOLE\TRIMETHOPRIM
     Indication: PROPHYLAXIS
     Dosage: 4.5 G, QD
     Route: 048
     Dates: start: 20170326, end: 20170406
  2. PRED [Concomitant]
     Active Substance: PREDNISONE
     Dosage: 50 MG, QD
     Route: 042
  3. EXFORGE [Suspect]
     Active Substance: AMLODIPINE BESYLATE\VALSARTAN
     Indication: HYPERTENSION
     Dosage: 1DF: VALSARTAN 80MG AND AMLODIPINE BESYLATE 5MG, QD
     Route: 048
     Dates: end: 20170321
  4. PRED [Concomitant]
     Active Substance: PREDNISONE
     Indication: PRODUCT USED FOR UNKNOWN INDICATION
     Dosage: 15 MG, QD
     Route: 065
  5. BACTRAMIN [Interacting]
     Active Substance: SULFAMETHOXAZOLE\TRIMETHOPRIM
     Indication: PNEUMOCYSTIS JIROVECII PNEUMONIA
     Dosage: 3 DF, TID
     Route: 048
     Dates: start: 20170317, end: 20170325
  6. EXFORGE [Interacting]
     Active Substance: AMLODIPINE BESYLATE\VALSARTAN
     Dosage: 1DF: VALSARTAN 80MG AND AMLODIPINE BESYLATE 5MG, QD
     Route: 048
     Dates: start: 20171023, end: 20171219
  7. BACTRAMIN [Interacting]
     Active Substance: SULFAMETHOXAZOLE\TRIMETHOPRIM
     Dosage: 1 DF, QD
     Route: 048
     Dates: start: 20170407

REACTIONS (11)
  - Electrocardiogram T wave abnormal [Unknown]
  - Condition aggravated [Unknown]
  - Oxygen saturation decreased [Unknown]
  - Renal impairment [Recovered/Resolved]
  - Hyperkalaemia [Recovered/Resolved]
  - Respiratory failure [Unknown]
  - Renal impairment [Unknown]
  - Electrocardiogram QRS complex prolonged [Unknown]
  - Drug interaction [Unknown]
  - Hyperkalaemia [Unknown]
  - Blood pressure increased [Unknown]

NARRATIVE: CASE EVENT DATE: 20170321
